FAERS Safety Report 5451433-6 (Version None)
Quarter: 2007Q3

REPORT INFORMATION
  Report Type: 
  Country: None (occurrence: None)
  Receive Date: 20070913
  Receipt Date: 20070903
  Transmission Date: 20080115
  Serious: Yes (Hospitalization)
  Sender: FDA-Public Use
  Company Number: B0486772A

PATIENT
  Age: 78 Year
  Sex: Female
  Weight: 46 kg

DRUGS (11)
  1. AUGMENTIN '125' [Suspect]
     Route: 065
  2. PREVISCAN [Suspect]
     Dosage: 30MG PER DAY
     Route: 048
  3. OFLOCET [Suspect]
     Route: 065
     Dates: start: 20070701
  4. CARDENSIEL [Concomitant]
     Route: 065
  5. SOLU-MEDROL [Concomitant]
     Route: 065
  6. LORAZEPAM [Concomitant]
     Route: 065
  7. FORLAX [Concomitant]
     Route: 065
  8. INIPOMP [Concomitant]
     Route: 065
  9. DI ANTALVIC [Concomitant]
     Route: 065
  10. TRIATEC [Concomitant]
     Route: 065
  11. ATHYMIL [Concomitant]
     Route: 065

REACTIONS (2)
  - DRUG INTERACTION [None]
  - INTERNATIONAL NORMALISED RATIO INCREASED [None]
